FAERS Safety Report 5079408-X (Version None)
Quarter: 2006Q3

REPORT INFORMATION
  Report Type: 
  Country: None (occurrence: None)
  Receive Date: 20060814
  Receipt Date: 20060214
  Transmission Date: 20061208
  Serious: Yes (Hospitalization)
  Sender: FDA-Public Use
  Company Number: US-ROCHE-436827

PATIENT
  Age: 52 Year
  Sex: Female
  Weight: 73.9 kg

DRUGS (1)
  1. BONIVA [Suspect]
     Indication: OSTEOPOROSIS
     Route: 048
     Dates: start: 20050726, end: 20050824

REACTIONS (4)
  - EROSIVE OESOPHAGITIS [None]
  - FUNGAL INFECTION [None]
  - OESOPHAGEAL ULCER [None]
  - OESOPHAGITIS [None]
